FAERS Safety Report 10146193 (Version 1)
Quarter: 2014Q2

REPORT INFORMATION
  Report Type: Spontaneous
  Country: US (occurrence: None)
  Receive Date: 20140429
  Receipt Date: 20140429
  Transmission Date: 20141212
  Serious: Yes (Hospitalization)
  Sender: FDA-Public Use
  Company Number: 2307294

PATIENT
  Age: 59 Year
  Sex: Female

DRUGS (7)
  1. DOCETAXEL [Suspect]
     Indication: BREAST CANCER STAGE IV
     Dosage: 1 WEEK
  2. DOCETAXEL [Suspect]
     Indication: METASTASES TO BONE
     Dosage: 1 WEEK
  3. DENOSUMAB [Concomitant]
     Indication: BREAST CANCER STAGE IV
  4. DENOSUMAB [Concomitant]
     Indication: METASTASES TO BONE
  5. ANASTROZOLE [Concomitant]
     Indication: BREAST CANCER STAGE IV
  6. ANASTROZOLE [Concomitant]
     Indication: METASTASES TO BONE
  7. THERAPEUTIC RADIOPHARMACEUTICALS [Concomitant]

REACTIONS (3)
  - Lacrimation increased [None]
  - Eyelid oedema [None]
  - Vision blurred [None]
